FAERS Safety Report 7759660-X (Version None)
Quarter: 2011Q3

REPORT INFORMATION
  Report Type: 
  Country: None (occurrence: None)
  Receive Date: 20110919
  Receipt Date: 20110909
  Transmission Date: 20111222
  Serious: Yes (Hospitalization)
  Sender: FDA-Public Use
  Company Number: FR-JNJFOC-20110200098

PATIENT
  Sex: Male
  Weight: 68.6 kg

DRUGS (7)
  1. USTEKINUMAB [Suspect]
     Route: 058
     Dates: start: 20110208, end: 20110208
  2. USTEKINUMAB [Suspect]
     Route: 058
     Dates: start: 20110503, end: 20110503
  3. METHOTREXATE [Suspect]
     Indication: PSORIASIS
  4. USTEKINUMAB [Suspect]
     Indication: PSORIASIS
     Route: 058
     Dates: start: 20100729, end: 20100729
  5. USTEKINUMAB [Suspect]
     Route: 058
     Dates: start: 20100826, end: 20100826
  6. USTEKINUMAB [Suspect]
     Route: 058
     Dates: start: 20101116, end: 20101116
  7. ACETAMINOPHEN [Concomitant]
     Route: 048
     Dates: start: 20110107, end: 20110114

REACTIONS (1)
  - PILONIDAL CYST [None]
